FAERS Safety Report 14867554 (Version 1)
Quarter: 2018Q2

REPORT INFORMATION
  Report Type: Spontaneous
  Country: BR (occurrence: BR)
  Receive Date: 20180508
  Receipt Date: 20180508
  Transmission Date: 20180711
  Serious: Yes (Life-Threatening, Hospitalization)
  Sender: FDA-Public Use
  Company Number: PHHY2018BR004122

PATIENT
  Sex: Male
  Weight: 92 kg

DRUGS (6)
  1. ALPRAZOLAM. [Suspect]
     Active Substance: ALPRAZOLAM
     Indication: PRODUCT USED FOR UNKNOWN INDICATION
     Dosage: UNK
     Route: 065
  2. OLCADIL [Suspect]
     Active Substance: CLOXAZOLAM
     Indication: ANXIETY
     Dosage: 2 DF, QD
     Route: 048
  3. CLOXAZOLAM [Suspect]
     Active Substance: CLOXAZOLAM
     Indication: INSOMNIA
  4. CLOXAZOLAM [Suspect]
     Active Substance: CLOXAZOLAM
     Indication: ANXIETY
     Dosage: 2 MG, QD
     Route: 048
  5. OLCADIL [Suspect]
     Active Substance: CLOXAZOLAM
     Indication: SLEEP DISORDER
  6. OLCADIL [Suspect]
     Active Substance: CLOXAZOLAM
     Indication: PHOBIA

REACTIONS (13)
  - Phobia [Not Recovered/Not Resolved]
  - Drug withdrawal syndrome [Not Recovered/Not Resolved]
  - Wrong technique in product usage process [Not Recovered/Not Resolved]
  - Tremor [Not Recovered/Not Resolved]
  - Hyperhidrosis [Not Recovered/Not Resolved]
  - Malaise [Not Recovered/Not Resolved]
  - Feeling abnormal [Not Recovered/Not Resolved]
  - Drug dependence [Not Recovered/Not Resolved]
  - General physical health deterioration [Not Recovered/Not Resolved]
  - Anxiety [Not Recovered/Not Resolved]
  - Insomnia [Not Recovered/Not Resolved]
  - Nasopharyngitis [Not Recovered/Not Resolved]
  - Condition aggravated [Not Recovered/Not Resolved]
